FAERS Safety Report 18094641 (Version 1)
Quarter: 2020Q3

REPORT INFORMATION
  Report Type: Report from Study
  Country: IT (occurrence: IT)
  Receive Date: 20200730
  Receipt Date: 20200730
  Transmission Date: 20201103
  Serious: Yes (Death)
  Sender: FDA-Public Use
  Company Number: IT-JNJFOC-20170305558

PATIENT
  Age: 79 Year
  Sex: Male
  Weight: 47 kg

DRUGS (1)
  1. ABIRATERONE ACETATE. [Suspect]
     Active Substance: ABIRATERONE ACETATE
     Indication: PROSTATE CANCER
     Route: 048
     Dates: start: 20161116, end: 20170206

REACTIONS (1)
  - Concomitant disease progression [Fatal]

NARRATIVE: CASE EVENT DATE: 20170206
